FAERS Safety Report 4756167-9 (Version None)
Quarter: 2005Q3

REPORT INFORMATION
  Report Type: 
  Country: None (occurrence: None)
  Receive Date: 20050829
  Receipt Date: 20050829
  Transmission Date: 20060218
  Serious: Yes (Death)
  Sender: FDA-Public Use
  Company Number: None

PATIENT
  Age: 59 Year
  Sex: Male
  Weight: 90.7194 kg

DRUGS (1)
  1. VIOXX [Suspect]
     Indication: BACK PAIN
     Dosage: 1 TABLET  DAILY  PO
     Route: 048
     Dates: start: 20000101, end: 20040305

REACTIONS (1)
  - MYOCARDIAL INFARCTION [None]
